FAERS Safety Report 9807348 (Version 1)
Quarter: 2014Q1

REPORT INFORMATION
  Report Type: Report from Study
  Country: US (occurrence: US)
  Receive Date: 20140110
  Receipt Date: 20140110
  Transmission Date: 20141002
  Serious: Yes (Other)
  Sender: FDA-Public Use
  Company Number: US-ROCHE-1331781

PATIENT
  Sex: Female

DRUGS (15)
  1. LUCENTIS [Suspect]
     Indication: AGE-RELATED MACULAR DEGENERATION
     Route: 050
     Dates: start: 20080731
  2. LUCENTIS [Suspect]
     Indication: AGE-RELATED MACULAR DEGENERATION
     Route: 050
     Dates: start: 20121206
  3. LUCENTIS [Suspect]
     Indication: CATARACT
     Route: 050
     Dates: start: 20130103
  4. LUCENTIS [Suspect]
     Dosage: OS
     Route: 050
     Dates: start: 20130207
  5. LUCENTIS [Suspect]
     Dosage: OS
     Route: 050
     Dates: start: 20130328
  6. LUCENTIS [Suspect]
     Dosage: MOST RECENT DOSE: 27/AUG/2013
     Route: 050
     Dates: start: 20131029
  7. AVASTIN [Suspect]
     Indication: PRODUCT USED FOR UNKNOWN INDICATION
     Route: 065
  8. ALPHAGAN [Concomitant]
     Route: 065
  9. ALPHAGAN [Concomitant]
     Route: 065
     Dates: start: 20130207, end: 20130207
  10. TRAVATAN [Concomitant]
     Route: 065
  11. TRAVATAN [Concomitant]
     Route: 065
     Dates: start: 20130207, end: 20130207
  12. BRIMONIDINE [Concomitant]
  13. VITAMIN E [Concomitant]
  14. MELATONIN [Concomitant]
  15. NIACINAMIDE [Concomitant]

REACTIONS (11)
  - Eye discharge [Unknown]
  - Eye irritation [Unknown]
  - Eye pruritus [Unknown]
  - Ocular hyperaemia [Unknown]
  - Visual impairment [Unknown]
  - Dry eye [Unknown]
  - Visual acuity reduced [Unknown]
  - Glare [Unknown]
  - Eye pain [Unknown]
  - Photophobia [Unknown]
  - Hypertension [Unknown]
